FAERS Safety Report 4779093-8 (Version None)
Quarter: 2005Q3

REPORT INFORMATION
  Report Type: 
  Country: None (occurrence: None)
  Receive Date: 20050923
  Receipt Date: 20050915
  Transmission Date: 20060218
  Serious: Yes (Death)
  Sender: FDA-Public Use
  Company Number: 6017292

PATIENT
  Age: 84 Year
  Sex: Female

DRUGS (13)
  1. CARDENSIEL (2,5 MG TABLET)(BISOPROLOL) [Suspect]
     Dosage: 2,5 MG (2,5 MG, 1 D); ORAL
     Route: 048
     Dates: start: 20030615
  2. FUROSEMIDE [Concomitant]
  3. FERROUS SULFATE TAB [Concomitant]
  4. LESCOL (CAPSULE (FLUVASTATIN SODIUM) [Concomitant]
  5. LORAZEPAM [Concomitant]
  6. DUPHALAC [Concomitant]
  7. OMEPRAZOLE [Concomitant]
  8. PAROXETINE HYDROCHLORIDE [Concomitant]
  9. ZYLORIC (TABLET) (ALLOPURINOL) [Concomitant]
  10. TRIATEC (CAPSULE) (RAMIPRIL) [Concomitant]
  11. KARDEGIC (POWDER FOR ORAL SOLUTION) (ACETYLSALICYLATE LYSINE) [Concomitant]
  12. AMIODARONE (TABLET) (AMIODARONE HYDROCHLORIDE) [Concomitant]
  13. UMULINE (INSULIN HUMAN ZINC SUSPENSION) [Concomitant]

REACTIONS (4)
  - BRADYCARDIA [None]
  - CARDIAC FAILURE [None]
  - CREPITATIONS [None]
  - PULMONARY OEDEMA [None]
